FAERS Safety Report 8917230 (Version 1)
Quarter: 2012Q4

REPORT INFORMATION
  Report Type: 
  Country: US (occurrence: US)
  Receive Date: 20121119
  Receipt Date: 20121119
  Transmission Date: 20130627
  Serious: Yes (Other)
  Sender: FDA-Public Use
  Company Number: US-BAYER-2012-120591

PATIENT
  Sex: Female

DRUGS (11)
  1. BAYER ASPIRIN REGIMEN ADULT LOW STRENGTH [Suspect]
     Dosage: UNK
  2. PLAVIX [Concomitant]
     Dosage: UNK
     Dates: start: 200807
  3. LOTENSIN [Concomitant]
  4. LEVOTHYROXINE [Concomitant]
  5. METOPROLOL [Concomitant]
  6. CELEXA [Concomitant]
  7. PRAVASTATIN [Concomitant]
  8. VITAMIN B [Concomitant]
  9. COQ10 [Concomitant]
  10. POTASSIUM [Concomitant]
  11. LORAZEPAM [Concomitant]

REACTIONS (2)
  - Gastric ulcer [Not Recovered/Not Resolved]
  - Abdominal pain upper [Not Recovered/Not Resolved]
